FAERS Safety Report 24125208 (Version 1)
Quarter: 2024Q3

REPORT INFORMATION
  Report Type: Report from Study
  Country: PT (occurrence: PT)
  Receive Date: 20240723
  Receipt Date: 20240723
  Transmission Date: 20241017
  Serious: Yes (Death)
  Sender: ABBVIE
  Company Number: PT-ABBVIE-5848441

PATIENT
  Age: 79 Year
  Sex: Female

DRUGS (6)
  1. CARBIDOPA\LEVODOPA [Suspect]
     Active Substance: CARBIDOPA\LEVODOPA
     Indication: Parkinson^s disease
     Dosage: 20 MG + 5 MG (VIA PEG) MORN:12CC;MAINT:3.3CC/H;EXTR:4.5CC
     Route: 050
     Dates: start: 20240512, end: 20240718
  2. CARBIDOPA\LEVODOPA [Suspect]
     Active Substance: CARBIDOPA\LEVODOPA
     Dosage: 20 MG + 5 MG MORN:16.5CC;MAINT:4.5CC/H;EXTR:1CC
     Route: 050
     Dates: start: 20200916
  3. CARBIDOPA\LEVODOPA [Suspect]
     Active Substance: CARBIDOPA\LEVODOPA
     Dosage: 20 MG + 5 MG MORN:12CC;MAINT:3.3CC/H;EXTR:4.5CC
     Route: 050
     Dates: start: 2024, end: 20240512
  4. ALPRAZOLAM [Concomitant]
     Active Substance: ALPRAZOLAM
     Indication: Anxiety
     Dosage: BEFORE DUODOPA
     Route: 048
  5. MEMANTINE [Concomitant]
     Active Substance: MEMANTINE
     Indication: Dementia
     Dosage: BEFORE DUODOPA
     Route: 048
  6. RIVASTIGMINE [Concomitant]
     Active Substance: RIVASTIGMINE
     Indication: Dementia
     Dosage: BEFORE DUODOPA
     Route: 062

REACTIONS (6)
  - Dyspnoea [Fatal]
  - Pyrexia [Fatal]
  - Mucosal dryness [Fatal]
  - Sepsis [Fatal]
  - Mucosal discolouration [Fatal]
  - Hyperhidrosis [Fatal]

NARRATIVE: CASE EVENT DATE: 20240718
